FAERS Safety Report 7771857-1 (Version None)
Quarter: 2011Q3

REPORT INFORMATION
  Report Type: 
  Country: None (occurrence: None)
  Receive Date: 20110922
  Receipt Date: 20100914
  Transmission Date: 20111222
  Serious: No
  Sender: FDA-Public Use
  Company Number: US-ASTRAZENECA-2010SE43238

PATIENT
  Sex: Female
  Weight: 68.9 kg

DRUGS (5)
  1. SEROQUEL [Suspect]
     Indication: ANXIETY DISORDER
     Route: 048
     Dates: start: 20080101, end: 20090101
  2. SEROQUEL [Suspect]
     Indication: DEPRESSION
     Route: 048
     Dates: start: 20080101, end: 20090101
  3. SEROQUEL [Suspect]
     Indication: PANIC DISORDER
     Route: 048
     Dates: start: 20080101, end: 20090101
  4. SEROQUEL [Suspect]
     Indication: BIPOLAR DISORDER
     Route: 048
     Dates: start: 20080101, end: 20090101
  5. LEXAPRO [Concomitant]
     Route: 048

REACTIONS (11)
  - DEPRESSION [None]
  - ANGER [None]
  - CRYING [None]
  - MANIA [None]
  - DRUG DOSE OMISSION [None]
  - FEELING ABNORMAL [None]
  - TACHYPHRENIA [None]
  - INSOMNIA [None]
  - WEIGHT DECREASED [None]
  - DECREASED APPETITE [None]
  - DYSKINESIA [None]
